FAERS Safety Report 24702880 (Version 1)
Quarter: 2024Q4

REPORT INFORMATION
  Report Type: Spontaneous
  Country: HU (occurrence: HU)
  Receive Date: 20241205
  Receipt Date: 20241205
  Transmission Date: 20250115
  Serious: Yes (Hospitalization)
  Sender: NOVARTIS
  Company Number: HU-002147023-NVSC2024HU209193

PATIENT
  Age: 55 Year
  Sex: Male
  Weight: 116.6 kg

DRUGS (4)
  1. COSENTYX [Suspect]
     Active Substance: SECUKINUMAB
     Indication: Psoriasis
     Dosage: 300 MG
     Route: 058
     Dates: start: 20230404, end: 20230824
  2. Elenium [Concomitant]
     Indication: Anxiety
     Dosage: UNK (2000)
     Route: 065
  3. PERINDOPRIL ARGININE [Concomitant]
     Active Substance: PERINDOPRIL ARGININE
     Indication: Hypertension
     Dosage: UNK (2000)
     Route: 065
  4. BISOPROLOL SANDOZ [Concomitant]
     Indication: Hypertension
     Dosage: UNK (2000)
     Route: 065

REACTIONS (6)
  - Dyshidrotic eczema [Recovered/Resolved]
  - Skin lesion [Recovered/Resolved]
  - Blister [Recovered/Resolved]
  - Papule [Recovered/Resolved]
  - Eczema infected [Recovered/Resolved]
  - Localised infection [Unknown]

NARRATIVE: CASE EVENT DATE: 20230824
